FAERS Safety Report 25110198 (Version 2)
Quarter: 2025Q1

REPORT INFORMATION
  Report Type: Spontaneous
  Country: DE (occurrence: DE)
  Receive Date: 20250324
  Receipt Date: 20250326
  Transmission Date: 20250408
  Serious: No
  Sender: BOEHRINGER INGELHEIM
  Company Number: DE-Komodo Health-a23aa000006SRHyAAO

PATIENT
  Age: 76 Year
  Sex: Male

DRUGS (1)
  1. JARDIANCE [Suspect]
     Active Substance: EMPAGLIFLOZIN
     Indication: Blood glucose abnormal
     Dates: start: 2023, end: 2023

REACTIONS (2)
  - Confusional state [Recovered/Resolved]
  - Homicidal ideation [Recovered/Resolved]
